FAERS Safety Report 5580900-X (Version None)
Quarter: 2008Q1

REPORT INFORMATION
  Report Type: 
  Country: None (occurrence: None)
  Receive Date: 20080103
  Receipt Date: 20071228
  Transmission Date: 20080703
  Serious: Yes (Death, Life-Threatening)
  Sender: FDA-Public Use
  Company Number: JP-GENENTECH-253511

PATIENT
  Sex: Female

DRUGS (7)
  1. GRTPA [Suspect]
     Indication: CEREBRAL INFARCTION
     Dosage: 24 MG, UNK
     Route: 042
     Dates: start: 20071022, end: 20071022
  2. RADICUT [Suspect]
     Indication: CEREBRAL INFARCTION
     Dosage: 30 MG, UNK
     Route: 041
     Dates: start: 20071022, end: 20071022
  3. AMPICILLIN AND SULBACTAM [Suspect]
     Indication: PNEUMONIA
     Dosage: 6 G, UNK
     Route: 041
     Dates: start: 20071022, end: 20071024
  4. METHYLPREDNISOLONE SODIUM SUCCINATE [Concomitant]
     Indication: DRUG USE FOR UNKNOWN INDICATION
     Dosage: 250 MG, UNK
     Route: 041
     Dates: start: 20071022, end: 20071024
  5. BROMHEXINE HYDROCHLORIDE [Concomitant]
     Dosage: 3 AMP, UNK
     Route: 044
  6. SIVELESTAT [Concomitant]
     Indication: DRUG USE FOR UNKNOWN INDICATION
     Dosage: 200 MG, UNK
     Route: 041
     Dates: start: 20071022, end: 20071024
  7. MEROPENEM [Concomitant]
     Indication: DRUG USE FOR UNKNOWN INDICATION
     Dosage: 1 G, UNK
     Route: 041
     Dates: start: 20071024

REACTIONS (3)
  - ACUTE RESPIRATORY FAILURE [None]
  - MULTI-ORGAN FAILURE [None]
  - PULMONARY OEDEMA [None]
